FAERS Safety Report 8191123-2 (Version None)
Quarter: 2012Q1

REPORT INFORMATION
  Report Type: 
  Country: None (occurrence: None)
  Receive Date: 20120307
  Receipt Date: 20120228
  Transmission Date: 20120608
  Serious: Yes (Hospitalization)
  Sender: FDA-Public Use
  Company Number: JP-GLAXOSMITHKLINE-B0782474A

PATIENT
  Sex: Female

DRUGS (7)
  1. COLD MEDICINE (UNSPECIFIED) [Concomitant]
     Dosage: 3IUAX PER DAY
     Route: 048
     Dates: start: 20120213
  2. FLAVITAN [Concomitant]
     Indication: DECREASED APPETITE
     Route: 042
  3. ATARAX [Concomitant]
     Indication: DECREASED APPETITE
     Route: 042
  4. ACTIT [Concomitant]
     Indication: DECREASED APPETITE
     Route: 042
  5. VITAMEDIN [Concomitant]
     Indication: DECREASED APPETITE
     Route: 042
  6. VITACIMIN [Concomitant]
     Indication: DECREASED APPETITE
     Route: 042
  7. CEFUROXIME [Suspect]
     Indication: UPPER RESPIRATORY TRACT INFLAMMATION
     Dosage: 1IUAX PER DAY
     Route: 048
     Dates: start: 20120213, end: 20120213

REACTIONS (6)
  - ASPARTATE AMINOTRANSFERASE INCREASED [None]
  - GAMMA-GLUTAMYLTRANSFERASE INCREASED [None]
  - ALANINE AMINOTRANSFERASE INCREASED [None]
  - PNEUMONIA [None]
  - DIARRHOEA [None]
  - PYREXIA [None]
